FAERS Safety Report 9911475 (Version 3)
Quarter: 2014Q1

REPORT INFORMATION
  Report Type: Spontaneous
  Country: JP (occurrence: JP)
  Receive Date: 20140219
  Receipt Date: 20140311
  Transmission Date: 20141002
  Serious: Yes (Hospitalization, Other)
  Sender: FDA-Public Use
  Company Number: PHHY2014JP019425

PATIENT
  Age: 79 Year
  Sex: Male

DRUGS (1)
  1. GLIVEC [Suspect]
     Indication: CHRONIC MYELOID LEUKAEMIA
     Dosage: 200 MG, QD
     Route: 048
     Dates: start: 2009

REACTIONS (5)
  - Cardiomyopathy [Recovered/Resolved]
  - Left ventricular hypertrophy [Unknown]
  - Aphagia [Unknown]
  - Pleural effusion [Unknown]
  - Pericardial effusion [Unknown]
